FAERS Safety Report 22040024 (Version 1)
Quarter: 2023Q1

REPORT INFORMATION
  Report Type: Spontaneous
  Country: US (occurrence: None)
  Receive Date: 20230224
  Receipt Date: 20230224
  Transmission Date: 20230418
  Serious: Yes (unspecified)
  Sender: FDA-Public Use
  Company Number: None

PATIENT
  Age: 54 Year
  Sex: Male
  Weight: 102.7 kg

DRUGS (3)
  1. CABENUVA [Suspect]
     Active Substance: CABOTEGRAVIR\RILPIVIRINE
     Indication: HIV infection
     Dosage: 6 ML EVERY OTHER MONTH INTRAMUSCULAR ?
     Route: 030
     Dates: start: 20230126, end: 20230223
  2. PRAVASTATIN [Concomitant]
     Active Substance: PRAVASTATIN
     Dates: start: 20210729
  3. VENLAFAXINE HYDROCHLORIDE [Concomitant]
     Active Substance: VENLAFAXINE HYDROCHLORIDE
     Dates: start: 20220114

REACTIONS (8)
  - Pruritus [None]
  - Urticaria [None]
  - Pharyngeal swelling [None]
  - Gait disturbance [None]
  - Asthenia [None]
  - Dysphonia [None]
  - Erythema [None]
  - Injection related reaction [None]

NARRATIVE: CASE EVENT DATE: 20230223
